FAERS Safety Report 9192272 (Version 3)
Quarter: 2013Q4

REPORT INFORMATION
  Report Type: Spontaneous
  Country: US (occurrence: None)
  Receive Date: 20120703
  Receipt Date: 20131226
  Transmission Date: 20140711
  Serious: Yes (Other)
  Sender: FDA-Public Use
  Company Number: PHEH2012US011017

PATIENT
  Age: 34 Year
  Sex: Female

DRUGS (1)
  1. GILENYA [Suspect]
     Route: 048
     Dates: start: 201103

REACTIONS (5)
  - Fatigue [None]
  - Muscle spasticity [None]
  - Arthralgia [None]
  - Gait disturbance [None]
  - Weight decreased [None]
